FAERS Safety Report 23399329 (Version 2)
Quarter: 2024Q1

REPORT INFORMATION
  Report Type: Report from Study
  Country: US (occurrence: US)
  Receive Date: 20240113
  Receipt Date: 20240212
  Transmission Date: 20240410
  Serious: Yes (Other)
  Sender: FDA-Public Use
  Company Number: US-ABBVIE-5583357

PATIENT
  Age: 72 Year
  Sex: Female

DRUGS (1)
  1. HUMIRA [Suspect]
     Active Substance: ADALIMUMAB
     Indication: Rheumatoid arthritis
     Dosage: CF; FORM STRENGTH: 40 MG
     Route: 058
     Dates: start: 20121117

REACTIONS (5)
  - Spinal compression fracture [Unknown]
  - Spinal fracture [Unknown]
  - Chest pain [Unknown]
  - Respiratory disorder [Unknown]
  - Lung disorder [Unknown]

NARRATIVE: CASE EVENT DATE: 20121117
